FAERS Safety Report 10149461 (Version 1)
Quarter: 2014Q2

REPORT INFORMATION
  Report Type: Spontaneous
  Country: JP (occurrence: None)
  Receive Date: 20140430
  Receipt Date: 20140430
  Transmission Date: 20141212
  Serious: No
  Sender: FDA-Public Use
  Company Number: B0985208A

PATIENT
  Age: 0 Day
  Sex: Female

DRUGS (5)
  1. PAROXETINE HYDROCHLORIDE TABLET (PAROXETINE HYDROCHLORIDE) [Suspect]
     Indication: DYSPNOEA
     Route: 064
     Dates: start: 20131119, end: 20140225
  2. ALPRAZOLAM [Concomitant]
  3. RITODRINE [Concomitant]
  4. IRON SALT [Concomitant]
  5. CHINESE MEDICATION [Concomitant]

REACTIONS (3)
  - Neonatal asphyxia [None]
  - Feeding disorder neonatal [None]
  - Maternal drugs affecting foetus [None]
